FAERS Safety Report 12834678 (Version 2)
Quarter: 2016Q4

REPORT INFORMATION
  Report Type: Spontaneous
  Country: US (occurrence: US)
  Receive Date: 20161010
  Receipt Date: 20161101
  Transmission Date: 20170207
  Serious: No
  Sender: FDA-Public Use
  Company Number: US-PFIZER INC-2016471396

PATIENT
  Age: 59 Year
  Sex: Female

DRUGS (3)
  1. METHOTREXATE SODIUM. [Suspect]
     Active Substance: METHOTREXATE SODIUM
     Indication: PSORIASIS
     Dosage: UNK UNK, WEEKLY(15-20 MG)
     Route: 048
     Dates: start: 2009
  2. COSENTYX [Suspect]
     Active Substance: SECUKINUMAB
     Dosage: UNK
  3. FOLIC ACID. [Concomitant]
     Active Substance: FOLIC ACID
     Dosage: UNK
     Dates: start: 2009

REACTIONS (7)
  - Dry mouth [Unknown]
  - Vulvovaginal dryness [Unknown]
  - Eye disorder [Unknown]
  - Vaginal disorder [Unknown]
  - Dry eye [Unknown]
  - Burning sensation [Unknown]
  - Nasal dryness [Unknown]
